FAERS Safety Report 9519562 (Version 2)
Quarter: 2013Q4

REPORT INFORMATION
  Report Type: Spontaneous
  Country: US (occurrence: US)
  Receive Date: 20130912
  Receipt Date: 20131010
  Transmission Date: 20140711
  Serious: Yes (Death, Other)
  Sender: FDA-Public Use
  Company Number: PHHY2013US100182

PATIENT
  Sex: Male

DRUGS (4)
  1. BACLOFEN INTRATHECAL [Suspect]
     Indication: PAIN
     Dosage: 781 UG PER DAY
     Route: 037
     Dates: start: 20120718
  2. CLONIDINE [Suspect]
     Dosage: 172.47 UG PER DAY
     Route: 037
  3. BUPIVACAINE [Suspect]
     Dosage: 13.017 MG PER /DAY
     Route: 037
  4. DILAUDID [Suspect]
     Dosage: 130.17 UG PER DAY
     Route: 037

REACTIONS (2)
  - Plasma cell myeloma [Fatal]
  - Condition aggravated [Fatal]
